FAERS Safety Report 5558799-7 (Version None)
Quarter: 2007Q4

REPORT INFORMATION
  Report Type: 
  Country: None (occurrence: None)
  Receive Date: 20071214
  Receipt Date: 20071204
  Transmission Date: 20080405
  Serious: Yes (Other)
  Sender: FDA-Public Use
  Company Number: US-PFIZER INC-2007103092

PATIENT
  Sex: Female
  Weight: 49 kg

DRUGS (2)
  1. LYRICA [Suspect]
     Indication: POST HERPETIC NEURALGIA
     Route: 048
  2. VITAMINS [Concomitant]

REACTIONS (5)
  - ANGINA PECTORIS [None]
  - CHEST PAIN [None]
  - HYPERSOMNIA [None]
  - INSOMNIA [None]
  - POOR QUALITY SLEEP [None]
